FAERS Safety Report 7921265-5 (Version None)
Quarter: 2011Q4

REPORT INFORMATION
  Report Type: 
  Country: None (occurrence: None)
  Receive Date: 20111117
  Receipt Date: 20111107
  Transmission Date: 20120403
  Serious: Yes (Hospitalization)
  Sender: FDA-Public Use
  Company Number: US-BAYER-2011-051096

PATIENT
  Age: 31 Year
  Sex: Female
  Weight: 70.295 kg

DRUGS (5)
  1. PERCOCET [Concomitant]
  2. FLEXERIL [Concomitant]
  3. YAZ [Suspect]
     Indication: ACNE
     Dosage: UNK
     Dates: start: 20070101, end: 20090101
  4. ACETAMINOPHEN [Concomitant]
  5. CEPHALEXIN [Concomitant]

REACTIONS (3)
  - PULMONARY EMBOLISM [None]
  - PAIN [None]
  - INJURY [None]
